FAERS Safety Report 8476426-6 (Version None)
Quarter: 2012Q2

REPORT INFORMATION
  Report Type: 
  Country: None (occurrence: None)
  Receive Date: 20120628
  Receipt Date: 20120606
  Transmission Date: 20120825
  Serious: No
  Sender: FDA-Public Use
  Company Number: US-ASTRAZENECA-2012SE38051

PATIENT
  Age: 53 Year
  Sex: Male
  Weight: 72.6 kg

DRUGS (6)
  1. NEXIUM [Suspect]
     Indication: GASTROOESOPHAGEAL REFLUX DISEASE
     Route: 048
     Dates: start: 20100101
  2. NEXIUM [Suspect]
     Indication: REFLUX LARYNGITIS
     Route: 048
     Dates: start: 20100101
  3. NEXIUM [Suspect]
     Route: 048
     Dates: start: 20110101
  4. NEXIUM [Suspect]
     Route: 048
     Dates: start: 20110101
  5. ZOLOFT [Concomitant]
     Indication: ANXIETY
  6. LEVOTHYROXINE [Concomitant]

REACTIONS (10)
  - BACK PAIN [None]
  - ANXIETY [None]
  - REGURGITATION [None]
  - DISEASE RECURRENCE [None]
  - CHEST PAIN [None]
  - SENSATION OF FOREIGN BODY [None]
  - GASTRITIS [None]
  - INTENTIONAL DRUG MISUSE [None]
  - DRUG INEFFECTIVE [None]
  - DYSPHAGIA [None]
